FAERS Safety Report 24994493 (Version 1)
Quarter: 2025Q1

REPORT INFORMATION
  Report Type: Spontaneous
  Country: IN (occurrence: IN)
  Receive Date: 20250221
  Receipt Date: 20250221
  Transmission Date: 20250408
  Serious: Yes (Death, Hospitalization, Other)
  Sender: Steriscience PTE
  Company Number: None

PATIENT
  Age: 51 Year
  Sex: Male

DRUGS (18)
  1. PIPERACILLIN SODIUM\TAZOBACTAM SODIUM [Suspect]
     Active Substance: PIPERACILLIN SODIUM\TAZOBACTAM SODIUM
     Indication: Toxic epidermal necrolysis
     Route: 042
  2. PIPERACILLIN SODIUM\TAZOBACTAM SODIUM [Suspect]
     Active Substance: PIPERACILLIN SODIUM\TAZOBACTAM SODIUM
     Indication: Drug reaction with eosinophilia and systemic symptoms
  3. DEXAMETHASONE [Suspect]
     Active Substance: DEXAMETHASONE
     Indication: Toxic epidermal necrolysis
     Route: 042
  4. DEXAMETHASONE [Suspect]
     Active Substance: DEXAMETHASONE
     Indication: Drug reaction with eosinophilia and systemic symptoms
  5. ACYCLOVIR [Suspect]
     Active Substance: ACYCLOVIR
     Indication: Toxic epidermal necrolysis
     Route: 042
  6. ACYCLOVIR [Suspect]
     Active Substance: ACYCLOVIR
     Indication: Drug reaction with eosinophilia and systemic symptoms
  7. FLUCONAZOLE [Suspect]
     Active Substance: FLUCONAZOLE
     Indication: Toxic epidermal necrolysis
     Route: 065
  8. FLUCONAZOLE [Suspect]
     Active Substance: FLUCONAZOLE
     Indication: Drug reaction with eosinophilia and systemic symptoms
  9. CLOTRIMAZOLE [Suspect]
     Active Substance: CLOTRIMAZOLE
     Indication: Toxic epidermal necrolysis
     Route: 065
  10. CLOTRIMAZOLE [Suspect]
     Active Substance: CLOTRIMAZOLE
     Indication: Drug reaction with eosinophilia and systemic symptoms
  11. FUSIDIC ACID [Suspect]
     Active Substance: FUSIDIC ACID
     Indication: Toxic epidermal necrolysis
     Route: 065
  12. FUSIDIC ACID [Suspect]
     Active Substance: FUSIDIC ACID
     Indication: Drug reaction with eosinophilia and systemic symptoms
  13. AZITHROMYCIN [Concomitant]
     Active Substance: AZITHROMYCIN
     Indication: Typhoid fever
     Route: 065
  14. LOPERAMIDE [Concomitant]
     Active Substance: LOPERAMIDE
     Indication: Typhoid fever
     Route: 065
  15. CALAMINE [Concomitant]
     Active Substance: CALAMINE\FERRIC OXIDE RED\ZINC OXIDE
     Indication: Typhoid fever
     Route: 065
  16. HYDROXYCHLOROQUINE [Concomitant]
     Active Substance: HYDROXYCHLOROQUINE
     Indication: Rheumatoid arthritis
     Route: 065
  17. METHOTREXATE [Concomitant]
     Active Substance: METHOTREXATE
     Indication: Rheumatoid arthritis
     Dosage: 8 MILLIGRAM, QW
     Route: 065
  18. PREDNISOLONE [Concomitant]
     Active Substance: PREDNISOLONE
     Indication: Rheumatoid arthritis
     Route: 065

REACTIONS (3)
  - Multiple organ dysfunction syndrome [Fatal]
  - Neutropenic sepsis [Fatal]
  - Drug ineffective for unapproved indication [Fatal]
